FAERS Safety Report 5694344-3 (Version None)
Quarter: 2008Q2

REPORT INFORMATION
  Report Type: 
  Country: None (occurrence: None)
  Receive Date: 20080402
  Receipt Date: 20080318
  Transmission Date: 20081010
  Serious: Yes (Other)
  Sender: FDA-Public Use
  Company Number: STI-2007-02191

PATIENT
  Sex: Male

DRUGS (2)
  1. 222A ERYTHROMYCIN TOPICAL (UNSPECIFIED) (ERYTHROMYCIN TOPICAL) [Suspect]
     Indication: ALOPECIA
     Dates: start: 19970414
  2. BACTROBAN [Suspect]

REACTIONS (6)
  - ALOPECIA [None]
  - ALOPECIA SCARRING [None]
  - BURNING SENSATION [None]
  - CAUSTIC INJURY [None]
  - CONDITION AGGRAVATED [None]
  - FOLLICULITIS [None]
